FAERS Safety Report 7581394-5 (Version None)
Quarter: 2011Q2

REPORT INFORMATION
  Report Type: 
  Country: None (occurrence: None)
  Receive Date: 20110629
  Receipt Date: 20110615
  Transmission Date: 20111010
  Serious: Yes (Death)
  Sender: FDA-Public Use
  Company Number: PHHY2011DE49752

PATIENT
  Sex: Male
  Weight: 94 kg

DRUGS (14)
  1. PERINDOPRIL ERBUMINE [Concomitant]
     Dosage: 1 DF, QD
     Route: 048
     Dates: start: 20030527, end: 20050601
  2. ALISKIREN [Suspect]
     Indication: HYPERTENSION
     Dosage: 1 DF, QD, 300 MG
     Route: 048
     Dates: start: 20090401
  3. OMEPRAZOLE [Concomitant]
     Dosage: 2 DF, QD
     Route: 048
     Dates: start: 20051212
  4. AMPARO [Concomitant]
     Dosage: 1 DF, Q96H
     Route: 048
     Dates: start: 20051212
  5. AMOXI [Concomitant]
     Dosage: 2 DF, QD
     Route: 048
     Dates: start: 20090309
  6. VIOXX [Concomitant]
     Dosage: 1 DF, QD
     Route: 048
     Dates: start: 20030527, end: 20040510
  7. ACE INHIBITOR NOS [Concomitant]
  8. ANTIDEPRESSANTS [Concomitant]
  9. AVELOX [Concomitant]
     Dosage: 1 DF, QD
     Route: 048
     Dates: start: 20100401
  10. ANTIHYPERTENSIVE DRUGS [Concomitant]
  11. ORAL ANTIDIABETICS [Concomitant]
     Indication: DIABETES MELLITUS
  12. STATINS [Concomitant]
  13. BACLOFEN [Concomitant]
     Dosage: 1 DF, Q96H
     Route: 048
     Dates: start: 20041007
  14. GLIBENHEXAL [Concomitant]
     Indication: DIABETES MELLITUS
     Dosage: 1 DF, QD
     Route: 048
     Dates: start: 20031024

REACTIONS (2)
  - HEART RATE INCREASED [None]
  - CEREBROVASCULAR ACCIDENT [None]
